FAERS Safety Report 9371735 (Version 1)
Quarter: 2013Q2

REPORT INFORMATION
  Report Type: Spontaneous
  Country: US (occurrence: US)
  Receive Date: 20130627
  Receipt Date: 20130627
  Transmission Date: 20140414
  Serious: No
  Sender: FDA-Public Use
  Company Number: US-PFIZER INC-2013191965

PATIENT
  Age: 40 Year
  Sex: Female
  Weight: 68.03 kg

DRUGS (5)
  1. LYRICA [Suspect]
     Indication: FIBROMYALGIA
     Dosage: 50 MG DAILY
     Dates: start: 201303, end: 2013
  2. LYRICA [Suspect]
     Dosage: 100 MG, 3X/DAY
     Dates: start: 2013, end: 201306
  3. BUSPAR [Concomitant]
     Indication: BIPOLAR DISORDER
     Dosage: 15 MG, 2X/DAY
  4. DEPAKOTE ER [Concomitant]
     Indication: SCHIZOPHRENIA
     Dosage: 250 MG, 2X/DAY
     Route: 048
  5. BENADRYL [Concomitant]
     Dosage: 50 MG, 2X/DAY

REACTIONS (1)
  - Pain [Not Recovered/Not Resolved]
